FAERS Safety Report 5167241-X (Version None)
Quarter: 2006Q4

REPORT INFORMATION
  Report Type: 
  Country: None (occurrence: None)
  Receive Date: 20061124
  Receipt Date: 20061117
  Transmission Date: 20070319
  Serious: Yes (Hospitalization, Other)
  Sender: FDA-Public Use
  Company Number: 2006143772

PATIENT
  Age: 50 Year
  Sex: Female

DRUGS (2)
  1. DILANTIN [Suspect]
     Indication: CONVULSION
  2. KLONOPIN [Suspect]
     Indication: CONVULSION

REACTIONS (3)
  - COMA [None]
  - DRUG LEVEL INCREASED [None]
  - MULTIPLE DRUG OVERDOSE [None]
